FAERS Safety Report 7804613-6 (Version None)
Quarter: 2011Q4

REPORT INFORMATION
  Report Type: 
  Country: None (occurrence: None)
  Receive Date: 20111010
  Receipt Date: 20111006
  Transmission Date: 20120403
  Serious: Yes (Death)
  Sender: FDA-Public Use
  Company Number: IT-SANOFI-AVENTIS-2011SA065357

PATIENT
  Sex: Male

DRUGS (4)
  1. CALCIUM CARBONATE [Concomitant]
  2. TAXOTERE [Suspect]
     Route: 041
     Dates: start: 20110909, end: 20110909
  3. ZOMETA [Concomitant]
  4. ELIGARD [Concomitant]

REACTIONS (6)
  - TYPE IV HYPERSENSITIVITY REACTION [None]
  - SHOCK [None]
  - THROMBOCYTOPENIA [None]
  - RENAL FAILURE ACUTE [None]
  - MULTI-ORGAN FAILURE [None]
  - ANGIOEDEMA [None]
